FAERS Safety Report 8583475-6 (Version None)
Quarter: 2012Q3

REPORT INFORMATION
  Report Type: 
  Country: None (occurrence: None)
  Receive Date: 20120809
  Receipt Date: 20120803
  Transmission Date: 20120928
  Serious: Yes (Other)
  Sender: FDA-Public Use
  Company Number: PHHY2012US067345

PATIENT
  Age: 58 Year
  Sex: Male

DRUGS (1)
  1. CITALOPRAM HYDROBROMIDE [Suspect]
     Indication: DEPRESSION

REACTIONS (5)
  - GRUNTING [None]
  - TOURETTE'S DISORDER [None]
  - TIC [None]
  - MUSCLE CONTRACTIONS INVOLUNTARY [None]
  - SENSORY DISTURBANCE [None]
